FAERS Safety Report 21706590 (Version 2)
Quarter: 2022Q4

REPORT INFORMATION
  Report Type: Spontaneous
  Country: JP (occurrence: JP)
  Receive Date: 20221209
  Receipt Date: 20221222
  Transmission Date: 20230113
  Serious: Yes (Death, Life-Threatening, Hospitalization, Other)
  Sender: FDA-Public Use
  Company Number: JP-Accord-290842

PATIENT
  Age: 79 Year
  Sex: Male
  Weight: 53.3 kg

DRUGS (5)
  1. CISPLATIN [Suspect]
     Active Substance: CISPLATIN
     Indication: Neuroendocrine carcinoma of the oesophagus
     Dosage: 80 MG/M2, DAY 1,  THE DOSE WAS REDUCED TO 80% BECAUSE OF THE OLD AGE AND UNDERNOURISHMENT CONDITION.
     Dates: start: 20201208
  2. ETOPOSIDE [Suspect]
     Active Substance: ETOPOSIDE
     Indication: Neuroendocrine carcinoma of the oesophagus
     Dosage: DAYS 1-3. THE DOSE WAS REDUCED TO 80% BECAUSE OF THE OLD AGE AND UNDERNOURISHMENT CONDITION.
     Dates: start: 20201208
  3. FUROSEMIDE [Suspect]
     Active Substance: FUROSEMIDE
     Indication: Weight increased
     Dates: start: 20201209
  4. FUROSEMIDE [Suspect]
     Active Substance: FUROSEMIDE
     Indication: Weight increased
     Dates: start: 20201210
  5. FUROSEMIDE [Suspect]
     Active Substance: FUROSEMIDE
     Indication: Weight increased
     Route: 048
     Dates: start: 20201211

REACTIONS (7)
  - Intestinal ischaemia [Fatal]
  - Loss of consciousness [Unknown]
  - Weight increased [Recovered/Resolved]
  - Blood pressure decreased [Unknown]
  - Nausea [Unknown]
  - Septic shock [Fatal]
  - Gastrointestinal necrosis [Fatal]

NARRATIVE: CASE EVENT DATE: 20201214
